FAERS Safety Report 8977472 (Version 1)
Quarter: 2012Q4

REPORT INFORMATION
  Report Type: 
  Country: US (occurrence: US)
  Receive Date: 20121220
  Receipt Date: 20121220
  Transmission Date: 20130627
  Serious: No
  Sender: FDA-Public Use
  Company Number: US-PFIZER INC-2012317858

PATIENT
  Age: 70 Year
  Sex: Female
  Weight: 48.98 kg

DRUGS (2)
  1. INTAL [Suspect]
     Indication: ASTHMA
     Dosage: UNK
  2. INTAL [Suspect]
     Dosage: UNK

REACTIONS (2)
  - Influenza [Unknown]
  - Expired drug administered [Unknown]
